FAERS Safety Report 9710794 (Version 1)
Quarter: 2013Q4

REPORT INFORMATION
  Report Type: Spontaneous
  Country: US (occurrence: US)
  Receive Date: 20131126
  Receipt Date: 20131126
  Transmission Date: 20140711
  Serious: No
  Sender: FDA-Public Use
  Company Number: US-BRISTOL-MYERS SQUIBB COMPANY-19005321

PATIENT
  Age: 57 Year
  Sex: Female
  Weight: 121.54 kg

DRUGS (6)
  1. BYETTA [Suspect]
     Indication: TYPE 2 DIABETES MELLITUS
     Dosage: 11JUN13
     Dates: start: 20130607
  2. TRADJENTA [Suspect]
     Indication: TYPE 2 DIABETES MELLITUS
  3. MICARDIS HCT [Concomitant]
     Dosage: 1DF:MYCARDIS 80 MG-25HCT
  4. SYNTHROID [Concomitant]
     Dosage: DOSE VALUE:175MCG
  5. PREDNISONE [Concomitant]
     Indication: VIITH NERVE PARALYSIS
     Dates: end: 201304
  6. NEURONTIN [Concomitant]
     Indication: VIITH NERVE PARALYSIS
     Dates: end: 201304

REACTIONS (6)
  - Blood glucose decreased [Recovering/Resolving]
  - Headache [Unknown]
  - Nausea [Recovered/Resolved]
  - Rash generalised [Unknown]
  - Abdominal pain upper [Unknown]
  - Drug dose omission [Unknown]
